FAERS Safety Report 16682640 (Version 2)
Quarter: 2019Q3

REPORT INFORMATION
  Report Type: Spontaneous
  Country: GR (occurrence: GR)
  Receive Date: 20190808
  Receipt Date: 20190816
  Transmission Date: 20191004
  Serious: Yes (Other)
  Sender: FDA-Public Use
  Company Number: GR-PFIZER INC-2019331968

PATIENT
  Age: 68 Year
  Sex: Female

DRUGS (6)
  1. METFORMIN/VILDAGLIPTIN [Suspect]
     Active Substance: METFORMIN\VILDAGLIPTIN
     Dosage: 850 / 50 MG
  2. HYDROCHLOROTHIAZIDE. [Suspect]
     Active Substance: HYDROCHLOROTHIAZIDE
     Dosage: 25 MG
  3. CLOPIDOGREL [Suspect]
     Active Substance: CLOPIDOGREL BISULFATE
     Dosage: 75 MG
  4. VALSARTAN. [Suspect]
     Active Substance: VALSARTAN
     Dosage: 320 MG
  5. NEBIVOLOL. [Suspect]
     Active Substance: NEBIVOLOL
     Dosage: 5 MG
  6. AMLODIPINE BESILATE [Suspect]
     Active Substance: AMLODIPINE BESYLATE
     Dosage: 10 MG

REACTIONS (9)
  - Abdominal pain lower [Unknown]
  - C-reactive protein increased [Recovered/Resolved]
  - Lymphadenopathy [Recovered/Resolved]
  - Dry eye [Unknown]
  - Pyrexia [Recovered/Resolved]
  - Sjogren^s syndrome [Recovered/Resolved]
  - Urinary tract infection [Unknown]
  - Pollakiuria [Recovered/Resolved]
  - Red blood cell sedimentation rate increased [Not Recovered/Not Resolved]
